FAERS Safety Report 25856538 (Version 1)
Quarter: 2025Q3

REPORT INFORMATION
  Report Type: Report from Study
  Country: GB (occurrence: GB)
  Receive Date: 20250929
  Receipt Date: 20250929
  Transmission Date: 20251020
  Serious: Yes (Other)
  Sender: JOHNSON AND JOHNSON
  Company Number: GB-JNJFOC-20250934251

PATIENT

DRUGS (3)
  1. TALQUETAMAB [Suspect]
     Active Substance: TALQUETAMAB
     Indication: Plasma cell myeloma
     Route: 065
  2. TECLISTAMAB [Suspect]
     Active Substance: TECLISTAMAB
     Indication: Plasma cell myeloma
     Route: 065
  3. ELRANATAMAB [Suspect]
     Active Substance: ELRANATAMAB
     Indication: Plasma cell myeloma
     Route: 065

REACTIONS (4)
  - Cytomegalovirus infection reactivation [Unknown]
  - Epstein-Barr virus infection reactivation [Unknown]
  - Adenovirus reactivation [Unknown]
  - Parvovirus B19 infection reactivation [Unknown]
